FAERS Safety Report 13614006 (Version 1)
Quarter: 2017Q2

REPORT INFORMATION
  Report Type: Report from Study
  Country: AR (occurrence: AR)
  Receive Date: 20170606
  Receipt Date: 20170606
  Transmission Date: 20170830
  Serious: Yes (Other)
  Sender: FDA-Public Use
  Company Number: AR-SUN PHARMACEUTICAL INDUSTRIES LTD-2017R1-142298

PATIENT
  Age: 20 Year
  Sex: Female

DRUGS (1)
  1. VALPROIC ACID. [Suspect]
     Active Substance: VALPROIC ACID
     Indication: CONDITION AGGRAVATED
     Route: 065

REACTIONS (2)
  - Epilepsy [Recovering/Resolving]
  - Hyperammonaemia [Unknown]
